FAERS Safety Report 9349054 (Version 3)
Quarter: 2014Q2

REPORT INFORMATION
  Report Type: Spontaneous
  Country: US (occurrence: US)
  Receive Date: 20130614
  Receipt Date: 20140610
  Transmission Date: 20141212
  Serious: Yes (Hospitalization)
  Sender: FDA-Public Use
  Company Number: US-BAYER-2013-070648

PATIENT
  Age: 27 Year
  Sex: Female

DRUGS (2)
  1. MIRENA [Suspect]
     Indication: CONTRACEPTION
     Dosage: 20 MCG/24HR, CONT
     Route: 015
     Dates: start: 20100113, end: 20140121
  2. IBUPROFEN [Concomitant]
     Indication: MENORRHAGIA
     Dosage: UNK

REACTIONS (9)
  - Uterine perforation [None]
  - Device issue [None]
  - Injury [None]
  - Flank pain [None]
  - Nausea [None]
  - Diarrhoea [None]
  - Pain [None]
  - Emotional distress [None]
  - Menorrhagia [None]
